APPROVED DRUG PRODUCT: QUINAPRIL HYDROCHLORIDE
Active Ingredient: QUINAPRIL HYDROCHLORIDE
Strength: EQ 20MG BASE
Dosage Form/Route: TABLET;ORAL
Application: A076036 | Product #003
Applicant: MYLAN PHARMACEUTICALS INC
Approved: Jan 28, 2005 | RLD: No | RS: No | Type: DISCN